FAERS Safety Report 10705239 (Version 1)
Quarter: 2015Q1

REPORT INFORMATION
  Report Type: Spontaneous
  Country: US (occurrence: US)
  Receive Date: 20150112
  Receipt Date: 20150112
  Transmission Date: 20150721
  Serious: Yes (Hospitalization, Other)
  Sender: FDA-Public Use
  Company Number: US-ELI_LILLY_AND_COMPANY-US201501000803

PATIENT
  Sex: Female

DRUGS (1)
  1. CYMBALTA [Suspect]
     Active Substance: DULOXETINE HYDROCHLORIDE
     Indication: DEPRESSION
     Dosage: UNK, UNKNOWN
     Route: 065
     Dates: start: 2010, end: 201306

REACTIONS (14)
  - Tremor [Unknown]
  - Drug withdrawal syndrome [Unknown]
  - Agitation [Unknown]
  - Product physical issue [None]
  - Mood swings [Unknown]
  - Irritability [Unknown]
  - Suicide attempt [Unknown]
  - Dizziness [Unknown]
  - Muscle spasms [Unknown]
  - Aggression [Unknown]
  - Vertigo [Unknown]
  - Suicidal ideation [Unknown]
  - Anxiety [Unknown]
  - Paraesthesia [Unknown]
